FAERS Safety Report 6402910-2 (Version None)
Quarter: 2009Q4

REPORT INFORMATION
  Report Type: 
  Country: None (occurrence: None)
  Receive Date: 20091014
  Receipt Date: 20091014
  Transmission Date: 20100525
  Serious: Yes (Life-Threatening, Hospitalization, Disabling, Other)
  Sender: FDA-Public Use
  Company Number: None

PATIENT
  Sex: Female
  Weight: 69.1 kg

DRUGS (1)
  1. NEURONTIN [Suspect]
     Indication: PAIN
     Dosage: 1200MG ONCE AT BEDTIME
     Dates: start: 20080325, end: 20090901

REACTIONS (9)
  - ANXIETY [None]
  - DEPRESSION [None]
  - ENURESIS [None]
  - HYPERTENSION [None]
  - INCONTINENCE [None]
  - INSOMNIA [None]
  - PRURITUS [None]
  - SKIN ULCER [None]
  - URINARY TRACT INFECTION [None]
